FAERS Safety Report 15435293 (Version 3)
Quarter: 2019Q1

REPORT INFORMATION
  Report Type: Spontaneous
  Country: US (occurrence: US)
  Receive Date: 20180927
  Receipt Date: 20190204
  Transmission Date: 20190417
  Serious: Yes (Hospitalization, Other)
  Sender: FDA-Public Use
  Company Number: US-DSJP-DSU-2017-144245

PATIENT

DRUGS (1)
  1. BENICAR [Suspect]
     Active Substance: OLMESARTAN MEDOXOMIL
     Indication: PRODUCT USED FOR UNKNOWN INDICATION
     Dosage: 5 MG, QD
     Route: 048
     Dates: start: 20120831, end: 20161220

REACTIONS (9)
  - Haemorrhoids [Unknown]
  - Acute kidney injury [Recovering/Resolving]
  - Oesophagitis [Unknown]
  - Diverticulum [Unknown]
  - Constipation [Unknown]
  - Presyncope [Unknown]
  - Sprue-like enteropathy [Recovering/Resolving]
  - Hypotension [Recovered/Resolved]
  - Diverticulitis [Not Recovered/Not Resolved]

NARRATIVE: CASE EVENT DATE: 201502
